FAERS Safety Report 7995123-4 (Version None)
Quarter: 2011Q4

REPORT INFORMATION
  Report Type: 
  Country: None (occurrence: None)
  Receive Date: 20111220
  Receipt Date: 20111219
  Transmission Date: 20120403
  Serious: Yes (Other)
  Sender: FDA-Public Use
  Company Number: US-GLAXOSMITHKLINE-A0955281A

PATIENT
  Age: 82 Year
  Sex: Female
  Weight: 72.7 kg

DRUGS (6)
  1. LEVOTHYROXINE SODIUM [Concomitant]
  2. PROMACTA [Suspect]
     Indication: PRODUCT USED FOR UNKNOWN INDICATION
     Dosage: 25MG TWICE PER DAY
     Route: 048
     Dates: start: 20111121
  3. METOPROLOL TARTRATE [Concomitant]
  4. PREDNISONE TAB [Concomitant]
  5. CLOTRIMAZOL [Concomitant]
  6. PANTOPRAZOLE [Concomitant]

REACTIONS (4)
  - PALMAR-PLANTAR ERYTHRODYSAESTHESIA SYNDROME [None]
  - DEEP VEIN THROMBOSIS [None]
  - RASH ERYTHEMATOUS [None]
  - ERYTHEMA [None]
